FAERS Safety Report 5493806-1 (Version None)
Quarter: 2007Q4

REPORT INFORMATION
  Report Type: 
  Country: None (occurrence: None)
  Receive Date: 20071015
  Receipt Date: 20070615
  Transmission Date: 20080405
  Serious: No
  Sender: FDA-Public Use
  Company Number: 2007SP002262

PATIENT
  Age: 55 Year
  Sex: Female
  Weight: 63.2768 kg

DRUGS (8)
  1. LUNESTA [Suspect]
     Indication: INSOMNIA
     Dosage: 3 MG; HS; ORAL; 1 MG; HS; ORAL; 1 MG; PRN; ORAL; 2 MG; HS; ORAL
     Route: 048
     Dates: start: 20070101, end: 20070101
  2. LUNESTA [Suspect]
     Indication: INSOMNIA
     Dosage: 3 MG; HS; ORAL; 1 MG; HS; ORAL; 1 MG; PRN; ORAL; 2 MG; HS; ORAL
     Route: 048
     Dates: start: 20070101, end: 20070101
  3. LUNESTA [Suspect]
     Indication: INSOMNIA
     Dosage: 3 MG; HS; ORAL; 1 MG; HS; ORAL; 1 MG; PRN; ORAL; 2 MG; HS; ORAL
     Route: 048
     Dates: start: 20070101, end: 20070101
  4. LUNESTA [Suspect]
     Indication: INSOMNIA
     Dosage: 3 MG; HS; ORAL; 1 MG; HS; ORAL; 1 MG; PRN; ORAL; 2 MG; HS; ORAL
     Route: 048
     Dates: start: 20070612, end: 20070614
  5. CARDIZEM [Concomitant]
  6. IBUPROFEN [Concomitant]
  7. ASCORBIC ACID [Concomitant]
  8. MELATONIN [Concomitant]

REACTIONS (4)
  - DYSGEUSIA [None]
  - HANGOVER [None]
  - MIDDLE INSOMNIA [None]
  - URINARY INCONTINENCE [None]
